FAERS Safety Report 9300273 (Version 3)
Quarter: 2013Q4

REPORT INFORMATION
  Report Type: Spontaneous
  Country: US (occurrence: US)
  Receive Date: 20130521
  Receipt Date: 20131010
  Transmission Date: 20140711
  Serious: No
  Sender: FDA-Public Use
  Company Number: US-JNJFOC-20130501586

PATIENT
  Age: 34 Year
  Sex: Female

DRUGS (9)
  1. INVEGA SUSTENNA [Suspect]
     Indication: PRODUCT USED FOR UNKNOWN INDICATION
     Route: 030
     Dates: start: 201205
  2. FENTANYL [Concomitant]
     Route: 062
  3. VICODIN [Concomitant]
     Route: 048
  4. AMPHETAMINE [Concomitant]
     Route: 048
  5. SINGULAIR [Concomitant]
     Route: 048
  6. DESMOPRESSIN [Concomitant]
  7. OMEPRAZOLE [Concomitant]
     Route: 048
  8. BUSPIRONE [Concomitant]
     Route: 048
  9. DICYCLOMINE [Concomitant]

REACTIONS (3)
  - Drug administration error [Not Recovered/Not Resolved]
  - Drug dose omission [Not Recovered/Not Resolved]
  - Product container seal issue [Unknown]
